FAERS Safety Report 5243767-5 (Version None)
Quarter: 2007Q1

REPORT INFORMATION
  Report Type: 
  Country: None (occurrence: None)
  Receive Date: 20070222
  Receipt Date: 20070208
  Transmission Date: 20070707
  Serious: Yes (Other)
  Sender: FDA-Public Use
  Company Number: PHFR2007GB00752

PATIENT
  Age: 5 Year
  Sex: Female

DRUGS (1)
  1. LAMISIL [Suspect]
     Indication: FUNGAL SKIN INFECTION
     Route: 061
     Dates: start: 20070115, end: 20070128

REACTIONS (2)
  - DIARRHOEA [None]
  - VOMITING [None]
